APPROVED DRUG PRODUCT: ACETAZOLAMIDE
Active Ingredient: ACETAZOLAMIDE
Strength: 250MG
Dosage Form/Route: TABLET;ORAL
Application: A088882 | Product #001
Applicant: HERITAGE PHARMA LABS INC
Approved: Oct 22, 1985 | RLD: No | RS: No | Type: DISCN